FAERS Safety Report 16853843 (Version 3)
Quarter: 2019Q4

REPORT INFORMATION
  Report Type: Spontaneous
  Country: US (occurrence: US)
  Receive Date: 20190926
  Receipt Date: 20191119
  Transmission Date: 20200122
  Serious: Yes (Hospitalization, Other)
  Sender: FDA-Public Use
  Company Number: US-BIOGEN-2019BI00788012

PATIENT
  Sex: Female

DRUGS (4)
  1. AVONEX [Suspect]
     Active Substance: INTERFERON BETA-1A
  2. AVONEX [Suspect]
     Active Substance: INTERFERON BETA-1A
     Indication: MULTIPLE SCLEROSIS
     Route: 030
     Dates: start: 20020726
  3. AVONEX [Suspect]
     Active Substance: INTERFERON BETA-1A
  4. AVONEX [Suspect]
     Active Substance: INTERFERON BETA-1A

REACTIONS (7)
  - Streptococcal abscess [Not Recovered/Not Resolved]
  - Arthritis [Unknown]
  - Injection site infection [Recovered/Resolved]
  - Influenza like illness [Recovered/Resolved]
  - Injection site hypersensitivity [Unknown]
  - Arthritis infective [Not Recovered/Not Resolved]
  - Exposure to contaminated device [Unknown]
